FAERS Safety Report 20746272 (Version 1)
Quarter: 2022Q2

REPORT INFORMATION
  Report Type: Spontaneous
  Country: US (occurrence: US)
  Receive Date: 20220425
  Receipt Date: 20220425
  Transmission Date: 20220721
  Serious: No
  Sender: FDA-Public Use
  Company Number: US-PFIZER INC-2018349981

PATIENT
  Age: 53 Year
  Sex: Female

DRUGS (2)
  1. LYRICA [Suspect]
     Active Substance: PREGABALIN
     Indication: Neuralgia
     Dosage: 300 MG, 2X/DAY
  2. LYRICA [Suspect]
     Active Substance: PREGABALIN
     Indication: Brain neoplasm

REACTIONS (5)
  - Wrong technique in product usage process [Unknown]
  - Muscle twitching [Unknown]
  - Pain in extremity [Unknown]
  - Off label use [Unknown]
  - Intentional product misuse [Unknown]
